FAERS Safety Report 14660705 (Version 1)
Quarter: 2018Q1

REPORT INFORMATION
  Report Type: Spontaneous
  Country: US (occurrence: US)
  Receive Date: 20180318
  Receipt Date: 20180318
  Transmission Date: 20180509
  Serious: Yes (Hospitalization)
  Sender: FDA-Public Use
  Company Number: None

PATIENT
  Age: 74 Year
  Sex: Female
  Weight: 58.9 kg

DRUGS (3)
  1. IPILIMUMAB [Suspect]
     Active Substance: IPILIMUMAB
     Indication: MALIGNANT MELANOMA STAGE III
     Dosage: 57.5 MG Q 6 WEEKS IV
     Route: 042
     Dates: start: 20180108, end: 20180220
  2. NIVOLUMAB 3MG/KG [Suspect]
     Active Substance: NIVOLUMAB
     Route: 042
     Dates: start: 20180108, end: 20180220
  3. PREDNISONE. [Concomitant]
     Active Substance: PREDNISONE

REACTIONS (3)
  - Colitis [None]
  - Clostridium difficile colitis [None]
  - Diarrhoea [None]

NARRATIVE: CASE EVENT DATE: 20180226
